FAERS Safety Report 7764265-0 (Version None)
Quarter: 2011Q3

REPORT INFORMATION
  Report Type: 
  Country: None (occurrence: None)
  Receive Date: 20110919
  Receipt Date: 20110908
  Transmission Date: 20111222
  Serious: Yes (Hospitalization)
  Sender: FDA-Public Use
  Company Number: 1040084

PATIENT
  Age: 72 Year
  Sex: Male

DRUGS (2)
  1. GENTAMICIN SULFATE [Suspect]
     Indication: PROPHYLAXIS
     Dosage: 240 MG MILLIGRAM(S), INTRAVENOUS
     Route: 042
  2. MORPHINE [Concomitant]

REACTIONS (7)
  - RASH GENERALISED [None]
  - RASH MACULAR [None]
  - EYE MOVEMENT DISORDER [None]
  - UNRESPONSIVE TO STIMULI [None]
  - DRUG HYPERSENSITIVITY [None]
  - NAUSEA [None]
  - CHEST DISCOMFORT [None]
